FAERS Safety Report 10519759 (Version 1)
Quarter: 2014Q4

REPORT INFORMATION
  Report Type: Spontaneous
  Country: US (occurrence: US)
  Receive Date: 20141015
  Receipt Date: 20141015
  Transmission Date: 20150528
  Serious: No
  Sender: FDA-Public Use
  Company Number: US-PFIZER INC-2014280299

PATIENT
  Age: 5 Year
  Sex: Male
  Weight: 27.21 kg

DRUGS (3)
  1. CLINDAMYCIN HCL [Suspect]
     Active Substance: CLINDAMYCIN HYDROCHLORIDE
     Indication: RASH
     Dosage: 150 MG, 3X/DAY (FOR TEN DAYS)
     Route: 048
     Dates: start: 20141006, end: 20141006
  2. PREDNISONE. [Suspect]
     Active Substance: PREDNISONE
     Dosage: UNK (ONE TEASPOON )
     Route: 048
  3. CLINDAMYCIN HCL [Suspect]
     Active Substance: CLINDAMYCIN HYDROCHLORIDE
     Indication: RASH

REACTIONS (4)
  - Vomiting [Recovered/Resolved]
  - Wrong technique in drug usage process [Unknown]
  - Product odour abnormal [Unknown]
  - Product taste abnormal [Unknown]

NARRATIVE: CASE EVENT DATE: 20141006
